FAERS Safety Report 7465121-8 (Version None)
Quarter: 2011Q2

REPORT INFORMATION
  Report Type: 
  Country: None (occurrence: None)
  Receive Date: 20110509
  Receipt Date: 20110504
  Transmission Date: 20111010
  Serious: Yes (Hospitalization, Other)
  Sender: FDA-Public Use
  Company Number: IE-US-EMD SERONO, INC.-7057762

PATIENT
  Sex: Female
  Weight: 68 kg

DRUGS (2)
  1. MENOPUR [Suspect]
     Indication: INFERTILITY FEMALE
     Route: 058
     Dates: start: 20110314, end: 20110328
  2. CHORIONIC GONADOTROPIN [Suspect]
     Indication: PRODUCT USED FOR UNKNOWN INDICATION
     Route: 058
     Dates: start: 20110325, end: 20110328

REACTIONS (5)
  - NAUSEA [None]
  - ABDOMINAL PAIN [None]
  - OVARIAN HYPERSTIMULATION SYNDROME [None]
  - DYSPNOEA [None]
  - ABDOMINAL DISTENSION [None]
